FAERS Safety Report 4448077-1 (Version None)
Quarter: 2004Q3

REPORT INFORMATION
  Report Type: 
  Country: None (occurrence: None)
  Receive Date: 20040913
  Receipt Date: 20040908
  Transmission Date: 20050211
  Serious: Yes (Other)
  Sender: FDA-Public Use
  Company Number: PHNU2004DE03166

PATIENT
  Age: 70 Year
  Sex: Female

DRUGS (5)
  1. CRANOC (LICENSED, FUJISAWA DEUTSCHLAND) [Suspect]
     Indication: HYPERCHOLESTEROLAEMIA
     Dosage: 80 MG, Q48H
     Route: 048
     Dates: start: 20030314, end: 20030512
  2. ZOCOR [Suspect]
     Indication: HYPERCHOLESTEROLAEMIA
     Route: 048
     Dates: start: 19950501, end: 19970101
  3. ZOCOR [Suspect]
     Route: 048
     Dates: start: 19991104, end: 20020401
  4. MAGNESIUM [Concomitant]
     Route: 048
  5. VITAMIN B COMPLEX CAP [Concomitant]
     Dosage: UNK, UNK
     Route: 048

REACTIONS (11)
  - AORTIC ATHEROSCLEROSIS [None]
  - BIOPSY MUSCLE ABNORMAL [None]
  - BLOOD CREATINE PHOSPHOKINASE INCREASED [None]
  - DYSPNOEA [None]
  - FATIGUE [None]
  - MYALGIA [None]
  - OSTEOCHONDROSIS [None]
  - PARAESTHESIA [None]
  - RHABDOMYOLYSIS [None]
  - SLEEP DISORDER [None]
  - X-RAY ABNORMAL [None]
